FAERS Safety Report 12987869 (Version 2)
Quarter: 2016Q4

REPORT INFORMATION
  Report Type: Report from Study
  Country: MX (occurrence: MX)
  Receive Date: 20161130
  Receipt Date: 20161230
  Transmission Date: 20170207
  Serious: No
  Sender: FDA-Public Use
  Company Number: PHHY2016MX163430

PATIENT
  Age: 74 Year
  Sex: Male

DRUGS (2)
  1. ACEFLAN [Concomitant]
     Indication: PROSTATOMEGALY
     Dosage: UNK
     Route: 048
  2. ENTRESTO [Suspect]
     Active Substance: SACUBITRIL\VALSARTAN
     Indication: BLOOD TRIGLYCERIDES INCREASED
     Dosage: 200 MG, QD (2X100 MG DAILY)
     Route: 048
     Dates: start: 20161118, end: 20161212

REACTIONS (2)
  - Headache [Recovered/Resolved]
  - Product use issue [Recovered/Resolved]

NARRATIVE: CASE EVENT DATE: 20161118
